FAERS Safety Report 7675144-1 (Version None)
Quarter: 2011Q3

REPORT INFORMATION
  Report Type: 
  Country: None (occurrence: None)
  Receive Date: 20110810
  Receipt Date: 20110808
  Transmission Date: 20111222
  Serious: Yes (Hospitalization, Other)
  Sender: FDA-Public Use
  Company Number: US-BRISTOL-MYERS SQUIBB COMPANY-15956535

PATIENT
  Age: 68 Year
  Sex: Male
  Weight: 79 kg

DRUGS (2)
  1. TAXOL [Suspect]
     Indication: NON-SMALL CELL LUNG CANCER
     Dosage: LAST ADMIN: 1JUN11 NO OF COURSE:1
     Dates: start: 20110420
  2. CARBOPLATIN [Suspect]
     Indication: NON-SMALL CELL LUNG CANCER
     Dosage: LAST ADMIN: 1JUN11 NO OF COURSE:1
     Dates: start: 20110420

REACTIONS (3)
  - LUNG DISORDER [None]
  - SUPRAVENTRICULAR TACHYCARDIA [None]
  - DYSPNOEA [None]
